FAERS Safety Report 7683584-X (Version None)
Quarter: 2011Q3

REPORT INFORMATION
  Report Type: 
  Country: None (occurrence: None)
  Receive Date: 20110815
  Receipt Date: 20110804
  Transmission Date: 20111222
  Serious: Yes (Other)
  Sender: FDA-Public Use
  Company Number: US-ASTRAZENECA-2010SE25461

PATIENT
  Age: 73 Year
  Sex: Female

DRUGS (2)
  1. PRILOSEC OTC [Suspect]
     Route: 048
  2. NEXIUM [Suspect]
     Route: 048

REACTIONS (11)
  - LUNG NEOPLASM [None]
  - DYSPEPSIA [None]
  - MALAISE [None]
  - LUNG NEOPLASM MALIGNANT [None]
  - DRUG INEFFECTIVE [None]
  - MYOCARDIAL INFARCTION [None]
  - WEIGHT DECREASED [None]
  - HAEMATOMA EVACUATION [None]
  - DRUG DOSE OMISSION [None]
  - ABDOMINAL PAIN UPPER [None]
  - PULMONARY HAEMORRHAGE [None]
